FAERS Safety Report 8785797 (Version 1)
Quarter: 2012Q4

REPORT INFORMATION
  Report Type: 
  Country: IT (occurrence: IT)
  Receive Date: 20120914
  Receipt Date: 20120914
  Transmission Date: 20130627
  Serious: Yes (Hospitalization)
  Sender: FDA-Public Use
  Company Number: IT-GLAXOSMITHKLINE-B0828289A

PATIENT
  Age: 57 Year
  Sex: Male

DRUGS (5)
  1. NEOTIGASON [Suspect]
     Indication: PSORIASIS
     Route: 048
     Dates: start: 20120717, end: 20120727
  2. FLUBASON [Suspect]
     Indication: PSORIASIS
     Route: 065
     Dates: start: 20120717, end: 20120727
  3. PREZISTA [Concomitant]
     Indication: HIV INFECTION
  4. NORVIR [Concomitant]
     Indication: HIV INFECTION
  5. TRUVADA [Concomitant]
     Indication: HIV INFECTION

REACTIONS (2)
  - Dermatitis exfoliative [Recovering/Resolving]
  - Psoriasis [None]
